FAERS Safety Report 7676992-4 (Version None)
Quarter: 2011Q3

REPORT INFORMATION
  Report Type: 
  Country: None (occurrence: None)
  Receive Date: 20110810
  Receipt Date: 20110810
  Transmission Date: 20111222
  Serious: Yes (Other)
  Sender: FDA-Public Use
  Company Number: None

PATIENT
  Age: 79 Year
  Sex: Male
  Weight: 52.6173 kg

DRUGS (4)
  1. FLOMAX [Concomitant]
  2. TARCEVA [Suspect]
     Indication: NON-SMALL CELL LUNG CANCER
     Dosage: 100 MG, DAILY, ORAL
     Route: 048
     Dates: start: 20110401, end: 20110726
  3. MULTI-VITAMINS [Concomitant]
  4. ALBUTEROL INHALER [Concomitant]

REACTIONS (4)
  - METASTASES TO SPINE [None]
  - NEOPLASM PROGRESSION [None]
  - NON-SMALL CELL LUNG CANCER [None]
  - LYMPHOCYTE COUNT DECREASED [None]
